FAERS Safety Report 5568587-3 (Version None)
Quarter: 2007Q4

REPORT INFORMATION
  Report Type: 
  Country: None (occurrence: None)
  Receive Date: 20071220
  Receipt Date: 20071213
  Transmission Date: 20080405
  Serious: Yes (Life-Threatening, Disabling)
  Sender: FDA-Public Use
  Company Number: PL-MERCK-0712USA08007

PATIENT
  Age: 13 Year
  Sex: Male

DRUGS (1)
  1. HYDROCORTONE [Suspect]
     Indication: CROHN'S DISEASE
     Route: 065

REACTIONS (1)
  - CROHN'S DISEASE [None]
